FAERS Safety Report 24956573 (Version 2)
Quarter: 2025Q1

REPORT INFORMATION
  Report Type: Report from Study
  Country: US (occurrence: US)
  Receive Date: 20250211
  Receipt Date: 20250220
  Transmission Date: 20250409
  Serious: Yes (Hospitalization)
  Sender: BRISTOL-MYERS SQUIBB COMPANY
  Company Number: US-BRISTOL-MYERS SQUIBB COMPANY-2025-018312

PATIENT
  Age: 76 Year
  Sex: Female
  Weight: 72.57 kg

DRUGS (1)
  1. ELIQUIS [Suspect]
     Active Substance: APIXABAN
     Indication: Deep vein thrombosis
     Route: 048
     Dates: start: 20250201

REACTIONS (8)
  - Arthralgia [Unknown]
  - Peripheral swelling [Unknown]
  - Muscular weakness [Unknown]
  - Hypokinesia [Unknown]
  - Asthenia [Unknown]
  - Joint swelling [Unknown]
  - Toothache [Unknown]
  - Pain [Unknown]

NARRATIVE: CASE EVENT DATE: 20250201
